FAERS Safety Report 7675452-4 (Version None)
Quarter: 2011Q3

REPORT INFORMATION
  Report Type: 
  Country: None (occurrence: None)
  Receive Date: 20110810
  Receipt Date: 20110727
  Transmission Date: 20111222
  Serious: Yes (Hospitalization)
  Sender: FDA-Public Use
  Company Number: FR-CELGENEUS-056-21880-11072992

PATIENT
  Sex: Male
  Weight: 96.6 kg

DRUGS (15)
  1. COUMADIN [Concomitant]
     Dosage: .5 MILLIGRAM
     Route: 048
  2. TRAMADOL HCL [Concomitant]
     Dosage: 100 MILLIGRAM
     Route: 048
  3. SPIRIVA [Concomitant]
     Route: 065
  4. ULTRA-LEVURE [Concomitant]
     Route: 065
  5. PRAVASTATIN SODIUM [Concomitant]
     Dosage: 20 MILLIGRAM
     Route: 048
  6. ESCITALOPRAM OXALATE [Concomitant]
     Dosage: 5 MILLIGRAM
     Route: 048
     Dates: start: 20090101
  7. ACETAMINOPHEN [Concomitant]
     Route: 065
  8. NEORECORMON [Suspect]
     Indication: MYELODYSPLASTIC SYNDROME
     Route: 058
     Dates: start: 20110517
  9. RED BLOOD CELLS [Concomitant]
     Route: 065
  10. REVLIMID [Suspect]
     Indication: MYELODYSPLASTIC SYNDROME
     Dosage: 10 MILLIGRAM
     Route: 048
     Dates: start: 20110513
  11. PREDNISONE [Concomitant]
     Dosage: 20 MILLIGRAM
     Route: 048
  12. OMEPRAZOLE [Concomitant]
     Dosage: 20 MILLIGRAM
     Route: 048
  13. ACETAMINOPHEN [Concomitant]
     Dosage: 500 MILLIGRAM
     Route: 048
  14. VERSTATIS [Concomitant]
     Route: 048
     Dates: start: 20110601
  15. ACUPAN [Concomitant]
     Route: 065

REACTIONS (1)
  - SKIN LESION [None]
